FAERS Safety Report 14322775 (Version 3)
Quarter: 2018Q1

REPORT INFORMATION
  Report Type: Spontaneous
  Country: IL (occurrence: IL)
  Receive Date: 20171225
  Receipt Date: 20180101
  Transmission Date: 20180509
  Serious: Yes (Death, Hospitalization, Other)
  Sender: FDA-Public Use
  Company Number: IL-ROCHE-2040211

PATIENT
  Age: 42 Year
  Sex: Female

DRUGS (4)
  1. MABTHERA [Suspect]
     Active Substance: RITUXIMAB
     Dosage: TOTAL DOSE
     Route: 042
     Dates: start: 201705, end: 201705
  2. SOLU-MEDROL [Concomitant]
     Active Substance: METHYLPREDNISOLONE SODIUM SUCCINATE
     Indication: MULTIPLE SCLEROSIS
     Dosage: SEVERAL DOSES
     Route: 065
     Dates: start: 2017, end: 2017
  3. OCREVUS [Suspect]
     Active Substance: OCRELIZUMAB
     Indication: PROGRESSIVE RELAPSING MULTIPLE SCLEROSIS
     Route: 042
     Dates: start: 20170905, end: 20170905
  4. MABTHERA [Suspect]
     Active Substance: RITUXIMAB
     Indication: MULTIPLE SCLEROSIS
     Dosage: TOTAL DOSE
     Route: 042
     Dates: start: 201603, end: 201603

REACTIONS (3)
  - Status epilepticus [Fatal]
  - Measles [Recovered/Resolved]
  - Epilepsy [Fatal]

NARRATIVE: CASE EVENT DATE: 201701
